FAERS Safety Report 25812826 (Version 1)
Quarter: 2025Q3

REPORT INFORMATION
  Report Type: Spontaneous
  Country: US (occurrence: US)
  Receive Date: 20250917
  Receipt Date: 20250917
  Transmission Date: 20251020
  Serious: No
  Sender: SANOFI AVENTIS
  Company Number: US-SA-2025SA276958

PATIENT
  Sex: Female
  Weight: 90.91 kg

DRUGS (17)
  1. DUPIXENT [Suspect]
     Active Substance: DUPILUMAB
     Indication: Dermatitis atopic
     Dosage: 300 MG, QOW
     Route: 058
     Dates: start: 2024, end: 2025
  2. DUPIXENT [Suspect]
     Active Substance: DUPILUMAB
     Dosage: 300 MG, QOW
     Route: 058
     Dates: start: 2025
  3. SODIUM FLUORIDE [Concomitant]
     Active Substance: SODIUM FLUORIDE
  4. AZELAIC ACID [Concomitant]
     Active Substance: AZELAIC ACID
  5. VOQUEZNA [Concomitant]
     Active Substance: VONOPRAZAN FUMARATE
  6. HYDROXYZINE HYDROCHLORIDE [Concomitant]
     Active Substance: HYDROXYZINE HYDROCHLORIDE
  7. AZELASTINE HYDROCHLORIDE [Concomitant]
     Active Substance: AZELASTINE HYDROCHLORIDE
  8. FLONASE ALLERGY RELIEF [Concomitant]
     Active Substance: FLUTICASONE PROPIONATE
  9. CLONAZEPAM [Concomitant]
     Active Substance: CLONAZEPAM
  10. PREDNISOLONE [Concomitant]
     Active Substance: PREDNISOLONE
  11. CYCLOSPORINE [Concomitant]
     Active Substance: CYCLOSPORINE
  12. VALACYCLOVIR [Concomitant]
     Active Substance: VALACYCLOVIR HYDROCHLORIDE
  13. MYRBETRIQ [Concomitant]
     Active Substance: MIRABEGRON
  14. PROPRANOLOL HYDROCHLORIDE [Concomitant]
     Active Substance: PROPRANOLOL HYDROCHLORIDE
  15. ATORVASTATIN CALCIUM [Concomitant]
     Active Substance: ATORVASTATIN CALCIUM
  16. HUMIRA [Concomitant]
     Active Substance: ADALIMUMAB
  17. SYNTHROID [Concomitant]
     Active Substance: LEVOTHYROXINE SODIUM

REACTIONS (1)
  - Urinary tract infection [Recovered/Resolved]

NARRATIVE: CASE EVENT DATE: 20250101
